FAERS Safety Report 21664536 (Version 1)
Quarter: 2022Q4

REPORT INFORMATION
  Report Type: Spontaneous
  Country: GB (occurrence: GB)
  Receive Date: 20221130
  Receipt Date: 20221130
  Transmission Date: 20230113
  Serious: Yes (Life-Threatening, Other)
  Sender: FDA-Public Use
  Company Number: None

PATIENT
  Age: 81 Year
  Sex: Female
  Weight: 50 kg

DRUGS (18)
  1. INVOKANA [Suspect]
     Active Substance: CANAGLIFLOZIN
     Indication: Diabetes mellitus
     Route: 048
     Dates: start: 20220304
  2. AMOXICILLIN [Concomitant]
     Active Substance: AMOXICILLIN
     Dates: start: 20220304
  3. BEZAFIBRATE [Concomitant]
     Active Substance: BEZAFIBRATE
     Dosage: 5000 UNIT
     Dates: start: 20220303
  4. DALTEPARIN [Concomitant]
     Active Substance: DALTEPARIN
     Dosage: 5,000 UNIT
     Dates: start: 20220303
  5. GENTAMICIN [Concomitant]
     Active Substance: GENTAMICIN
     Dates: start: 20220304
  6. DEXTROSE [Concomitant]
     Active Substance: DEXTROSE
     Dates: start: 20220304, end: 20220304
  7. LANTUS [Concomitant]
     Active Substance: INSULIN GLARGINE
     Dosage: 18 UNIT
     Dates: start: 20220304
  8. LEVOTHYROXINE [Concomitant]
     Active Substance: LEVOTHYROXINE
     Dates: start: 20220303
  9. POLYETHYLENE GLYCOLS [Concomitant]
     Active Substance: POLYETHYLENE GLYCOLS
     Dosage: SACHET
     Dates: start: 20220303
  10. MIRTAZAPINE [Concomitant]
     Active Substance: MIRTAZAPINE
     Dosage: 1 TABLET
     Dates: start: 20220303
  11. NOVORAPID [Concomitant]
     Active Substance: INSULIN ASPART
     Dosage: 4 UNIT
     Dates: start: 20220304
  12. OXYGEN [Concomitant]
     Active Substance: OXYGEN
     Dosage: CONTINUOUS 1-10 LITRES/MINUTE
     Dates: start: 20220303
  13. ACETAMINOPHEN [Concomitant]
     Active Substance: ACETAMINOPHEN
     Dates: start: 20220304
  14. POTASSIUM CHLORIDE [Concomitant]
     Active Substance: POTASSIUM CHLORIDE
     Dates: start: 20220303, end: 20220303
  15. PROPRANOLOL [Concomitant]
     Active Substance: PROPRANOLOL HYDROCHLORIDE
     Dates: start: 20220303
  16. SENNA LEAF [Concomitant]
     Active Substance: SENNA LEAF
     Dates: start: 20220303
  17. SODIUM CHLORIDE [Concomitant]
     Active Substance: SODIUM CHLORIDE
     Dates: start: 20220304
  18. TINZAPARIN [Concomitant]
     Active Substance: TINZAPARIN
     Dosage: 9,000 UNIT
     Dates: start: 20220303, end: 20220303

REACTIONS (1)
  - Diabetic ketoacidosis [Recovering/Resolving]

NARRATIVE: CASE EVENT DATE: 20220304
